FAERS Safety Report 16701666 (Version 2)
Quarter: 2019Q3

REPORT INFORMATION
  Report Type: Spontaneous
  Country: US (occurrence: US)
  Receive Date: 20190814
  Receipt Date: 20190926
  Transmission Date: 20191004
  Serious: Yes (Disabling, Other)
  Sender: FDA-Public Use
  Company Number: US-PFIZER INC-2019343881

PATIENT
  Age: 62 Year
  Sex: Female
  Weight: 75 kg

DRUGS (4)
  1. LYRICA [Suspect]
     Active Substance: PREGABALIN
     Indication: PAIN
     Dosage: 75 MG, 2X/DAY
     Route: 048
  2. LYRICA [Suspect]
     Active Substance: PREGABALIN
     Dosage: 150 MG, 2X/DAY
     Route: 048
  3. LYRICA [Suspect]
     Active Substance: PREGABALIN
     Dosage: 75 MG, 2X/DAY
     Route: 048
  4. LYRICA [Suspect]
     Active Substance: PREGABALIN
     Indication: POOR QUALITY SLEEP
     Dosage: 150 MG, 2X/DAY
     Route: 048

REACTIONS (7)
  - Vision blurred [Unknown]
  - Fatigue [Recovered/Resolved]
  - Dizziness [Unknown]
  - Pain [Recovered/Resolved]
  - Intentional product use issue [Unknown]
  - Insomnia [Recovered/Resolved]
  - Cerebrovascular accident [Unknown]

NARRATIVE: CASE EVENT DATE: 2019
